FAERS Safety Report 7982953-8 (Version None)
Quarter: 2011Q4

REPORT INFORMATION
  Report Type: 
  Country: None (occurrence: None)
  Receive Date: 20111215
  Receipt Date: 20111213
  Transmission Date: 20120403
  Serious: Yes (Death)
  Sender: FDA-Public Use
  Company Number: US-MERCK-1111USA02218

PATIENT
  Age: 59 Year
  Sex: Male

DRUGS (2)
  1. EPZICOM [Concomitant]
     Route: 065
  2. ISENTRESS [Suspect]
     Indication: HIV INFECTION
     Route: 048

REACTIONS (1)
  - DEATH [None]
